FAERS Safety Report 9330527 (Version 1)
Quarter: 2013Q2

REPORT INFORMATION
  Report Type: Spontaneous
  Country: US (occurrence: None)
  Receive Date: 20130604
  Receipt Date: 20130604
  Transmission Date: 20140414
  Serious: Yes (Death, Hospitalization)
  Sender: FDA-Public Use
  Company Number: None

PATIENT
  Age: 53 Year
  Sex: Male
  Weight: 83 kg

DRUGS (1)
  1. SEPHB4-HSA [Suspect]
     Indication: PERITONEAL MESOTHELIOMA MALIGNANT
     Dosage: 5 MG/KG D1, 8, 15, 22 IV DRIP
     Dates: start: 20121217, end: 20130322

REACTIONS (10)
  - Renal failure acute [None]
  - Moaning [None]
  - Thrombocytopenia [None]
  - Mental status changes [None]
  - Hyperkalaemia [None]
  - Sepsis [None]
  - Disease progression [None]
  - Fatigue [None]
  - Blood glucose decreased [None]
  - Hypomagnesaemia [None]
